FAERS Safety Report 25982730 (Version 3)
Quarter: 2025Q4

REPORT INFORMATION
  Report Type: Spontaneous
  Country: JP (occurrence: JP)
  Receive Date: 20251031
  Receipt Date: 20251226
  Transmission Date: 20260117
  Serious: Yes (Hospitalization)
  Sender: ROCHE
  Company Number: JP-CHUGAI-2025034150

PATIENT
  Age: 22 Year
  Sex: Male

DRUGS (1)
  1. HEMLIBRA [Suspect]
     Active Substance: EMICIZUMAB-KXWH
     Indication: Haemophilia A without inhibitors
     Dosage: 172 MILLIGRAM, ONCE/2WEEKS
     Route: 058
     Dates: start: 20200316

REACTIONS (1)
  - Tonsillar neoplasm [Recovered/Resolved]

NARRATIVE: CASE EVENT DATE: 20250917
